FAERS Safety Report 9087220 (Version 2)
Quarter: 2013Q2

REPORT INFORMATION
  Report Type: Spontaneous
  Country: US (occurrence: US)
  Receive Date: 20130131
  Receipt Date: 20130419
  Transmission Date: 20140414
  Serious: Yes (Hospitalization)
  Sender: FDA-Public Use
  Company Number: US-PFIZER INC-2013038480

PATIENT
  Age: 36 Year
  Sex: Male

DRUGS (4)
  1. METOPROLOL TARTRATE [Suspect]
     Indication: PRODUCT USED FOR UNKNOWN INDICATION
     Dosage: 10 TO 12 TABLETS
     Route: 065
  2. PREGABALIN [Suspect]
     Indication: PRODUCT USED FOR UNKNOWN INDICATION
     Dosage: 5 TO 8 CAPSULES
     Route: 065
  3. PROMETHAZINE HYDROCHLORIDE [Suspect]
     Indication: PRODUCT USED FOR UNKNOWN INDICATION
     Dosage: 4 TO 6 TABLETS
     Route: 065
  4. MECLIZINE [Suspect]
     Indication: PRODUCT USED FOR UNKNOWN INDICATION
     Dosage: 12 TO 15 TABLETS
     Route: 065

REACTIONS (12)
  - Overdose [Unknown]
  - Suicide attempt [Unknown]
  - Respiratory failure [Unknown]
  - Renal failure [Recovering/Resolving]
  - Hepatic ischaemia [Recovering/Resolving]
  - Brain injury [Unknown]
  - Blindness [Not Recovered/Not Resolved]
  - Adrenal insufficiency [Unknown]
  - Sepsis [Unknown]
  - Mental status changes [Unknown]
  - Hypotension [Unknown]
  - Bradycardia [Unknown]
